FAERS Safety Report 5571950-8 (Version None)
Quarter: 2007Q4

REPORT INFORMATION
  Report Type: 
  Country: None (occurrence: None)
  Receive Date: 20071221
  Receipt Date: 20071214
  Transmission Date: 20080405
  Serious: Yes (Hospitalization)
  Sender: FDA-Public Use
  Company Number: FR-ABBOTT-07P-056-0430021-00

PATIENT
  Age: 3 Year
  Sex: Female

DRUGS (4)
  1. ZECLAR [Suspect]
     Indication: ACUTE SINUSITIS
     Route: 048
  2. CARBAMAZEPINE [Suspect]
     Indication: PARTIAL SEIZURES
  3. CARBAMAZEPINE [Suspect]
  4. CARBAMAZEPINE [Suspect]

REACTIONS (3)
  - ATAXIA [None]
  - OVERDOSE [None]
  - VOMITING [None]
